FAERS Safety Report 19775298 (Version 2)
Quarter: 2021Q3

REPORT INFORMATION
  Report Type: Report from Study
  Country: AT (occurrence: AT)
  Receive Date: 20210901
  Receipt Date: 20210913
  Transmission Date: 20211014
  Serious: Yes (Hospitalization)
  Sender: FDA-Public Use
  Company Number: AT-ROCHE-2898872

PATIENT
  Age: 56 Year
  Sex: Female
  Weight: 68 kg

DRUGS (11)
  1. BLINDED TUCATINIB/PLACEBO [Suspect]
     Active Substance: TUCATINIB
     Indication: BREAST CANCER METASTATIC
     Route: 048
     Dates: start: 20210816, end: 20210818
  2. CONCOR [Concomitant]
     Active Substance: BISOPROLOL FUMARATE
     Dates: start: 202101
  3. NOVALGIN (AUSTRIA) [Concomitant]
  4. EUTHYROX [Concomitant]
     Active Substance: LEVOTHYROXINE SODIUM
     Dates: start: 202104
  5. XGEVA [Concomitant]
     Active Substance: DENOSUMAB
     Dates: start: 202106
  6. ARISTOCORT [Concomitant]
     Active Substance: TRIAMCINOLONE DIACETATE
     Dates: start: 202101
  7. ZOFRAN [Concomitant]
     Active Substance: ONDANSETRON HYDROCHLORIDE
  8. PASPERTIN [Concomitant]
  9. NEOSTIGMIN [Concomitant]
     Active Substance: NEOSTIGMINE
  10. PANTOPRAZOLE [Concomitant]
     Active Substance: PANTOPRAZOLE
     Dates: start: 202101
  11. TRASTUZUMAB EMTANSINE [Suspect]
     Active Substance: ADO-TRASTUZUMAB EMTANSINE
     Indication: BREAST CANCER METASTATIC
     Route: 042
     Dates: start: 20210816, end: 20210816

REACTIONS (4)
  - Hypokalaemia [Recovered/Resolved]
  - Acute kidney injury [Recovered/Resolved]
  - Gastrointestinal disorder [Not Recovered/Not Resolved]
  - Subileus [Recovered/Resolved]

NARRATIVE: CASE EVENT DATE: 20210818
